FAERS Safety Report 6910378-2 (Version None)
Quarter: 2010Q3

REPORT INFORMATION
  Report Type: 
  Country: None (occurrence: None)
  Receive Date: 20100806
  Receipt Date: 20100802
  Transmission Date: 20110219
  Serious: Yes (Life-Threatening)
  Sender: FDA-Public Use
  Company Number: GB-ASTRAZENECA-2010SE36029

PATIENT
  Age: 20 Year
  Sex: Female
  Weight: 65 kg

DRUGS (13)
  1. BUPIVACAINE HCL [Suspect]
     Indication: EPIDURAL ANAESTHESIA
     Route: 065
  2. BUPIVACAINE HCL [Suspect]
     Route: 065
  3. BUPIVACAINE HCL [Suspect]
     Route: 065
  4. LIDOCAINE [Suspect]
     Indication: EPIDURAL ANAESTHESIA
     Route: 065
  5. FENTANYL [Suspect]
     Indication: ANALGESIC THERAPY
     Route: 008
  6. FENTANYL [Suspect]
     Route: 008
  7. OXYTOCIN [Suspect]
     Indication: PRODUCT USED FOR UNKNOWN INDICATION
  8. SUXAMETHONIUM [Suspect]
     Indication: ANAESTHESIA
     Route: 065
  9. ISOFLURANE [Suspect]
     Indication: PRODUCT USED FOR UNKNOWN INDICATION
     Route: 065
  10. METOCLOPRAMIDE [Suspect]
     Indication: PROPHYLAXIS
     Route: 042
  11. RANITIDINE [Suspect]
     Indication: PROPHYLAXIS
     Route: 042
  12. SODIUM CITRATE [Suspect]
     Indication: PROPHYLAXIS
     Route: 048
  13. THIOPENTAL SODIUM [Suspect]
     Indication: ANAESTHESIA
     Route: 065

REACTIONS (3)
  - CARDIAC ARREST [None]
  - DRUG EXPOSURE DURING PREGNANCY [None]
  - INCORRECT ROUTE OF DRUG ADMINISTRATION [None]
